FAERS Safety Report 6553966-8 (Version None)
Quarter: 2010Q1

REPORT INFORMATION
  Report Type: 
  Country: None (occurrence: None)
  Receive Date: 20100127
  Receipt Date: 20100118
  Transmission Date: 20100710
  Serious: Yes (Other)
  Sender: FDA-Public Use
  Company Number: AU-EISAI INC.-E3810-03442-SPO-AU

PATIENT
  Sex: Female
  Weight: 56 kg

DRUGS (1)
  1. PARIET (RABEPRAZOLE) [Suspect]
     Indication: OESOPHAGEAL DISORDER
     Route: 048
     Dates: start: 20081020, end: 20081118

REACTIONS (4)
  - HAEMATURIA [None]
  - MALAISE [None]
  - PYREXIA [None]
  - RENAL PAIN [None]
